FAERS Safety Report 20491358 (Version 1)
Quarter: 2022Q1

REPORT INFORMATION
  Report Type: Spontaneous
  Country: US (occurrence: None)
  Receive Date: 20220218
  Receipt Date: 20220218
  Transmission Date: 20220423
  Serious: Yes (Other)
  Sender: FDA-Public Use
  Company Number: US-ROCHE-3027177

PATIENT
  Sex: Female
  Weight: 65.830 kg

DRUGS (1)
  1. OCREVUS [Suspect]
     Active Substance: OCRELIZUMAB
     Indication: Multiple sclerosis
     Dosage: SHE RECEIVED LLAST OCREVUS ON 03/FEB/2022
     Route: 042
     Dates: start: 20170822

REACTIONS (1)
  - Bladder cancer [Not Recovered/Not Resolved]
